FAERS Safety Report 24060523 (Version 1)
Quarter: 2024Q3

REPORT INFORMATION
  Report Type: Spontaneous
  Country: RO (occurrence: RO)
  Receive Date: 20240708
  Receipt Date: 20240708
  Transmission Date: 20241017
  Serious: Yes (Hospitalization, Other)
  Sender: CHEPLAPHARM
  Company Number: RO-CHEPLA-2024008296

PATIENT
  Age: 68 Year
  Sex: Female

DRUGS (6)
  1. TRETINOIN [Suspect]
     Active Substance: TRETINOIN
     Indication: Acute promyelocytic leukaemia
     Dosage: THREE DOSES OF VESANOID
  2. HYDROXYUREA [Suspect]
     Active Substance: HYDROXYUREA
     Indication: Acute promyelocytic leukaemia
  3. DEXAMETHASONE [Suspect]
     Active Substance: DEXAMETHASONE
     Indication: Acute promyelocytic leukaemia
  4. DEXAMETHASONE [Suspect]
     Active Substance: DEXAMETHASONE
     Indication: Acute promyelocytic leukaemia
     Dosage: INCREASED
  5. IDARUBICIN [Concomitant]
     Active Substance: IDARUBICIN
     Indication: Acute promyelocytic leukaemia
     Dosage: ADMINISTERED ON DAYS 2, 4, 6
  6. FILGRASTIM [Concomitant]
     Active Substance: FILGRASTIM
     Indication: Acute promyelocytic leukaemia

REACTIONS (2)
  - Pneumonia [Recovering/Resolving]
  - Off label use [Unknown]
